FAERS Safety Report 21847293 (Version 1)
Quarter: 2023Q1

REPORT INFORMATION
  Report Type: Spontaneous
  Country: US (occurrence: US)
  Receive Date: 20230111
  Receipt Date: 20230111
  Transmission Date: 20230418
  Serious: Yes (Other)
  Sender: FDA-Public Use
  Company Number: US-HORIZON THERAPEUTICS-HZN-2023-000129

PATIENT

DRUGS (12)
  1. RAYOS [Suspect]
     Active Substance: PREDNISONE
     Indication: Cutaneous vasculitis
     Route: 065
  2. RAYOS [Suspect]
     Active Substance: PREDNISONE
     Indication: Crohn^s disease
  3. INFLIXIMAB [Concomitant]
     Active Substance: INFLIXIMAB
     Route: 065
  4. METHOTREXATE [Concomitant]
     Active Substance: METHOTREXATE
     Route: 065
  5. FOLATE SODIUM [Concomitant]
     Active Substance: FOLATE SODIUM
     Route: 065
  6. MINOCYCLINE [Concomitant]
     Active Substance: MINOCYCLINE HYDROCHLORIDE
     Route: 065
  7. METRONIDAZOLE [Concomitant]
     Active Substance: METRONIDAZOLE
     Dosage: UNK
     Route: 065
  8. METRONIDAZOLE [Concomitant]
     Active Substance: METRONIDAZOLE
     Dosage: 500 MG, BID
     Route: 065
  9. QUESTRAN [Concomitant]
     Active Substance: CHOLESTYRAMINE
     Route: 065
  10. DAPSONE [Concomitant]
     Active Substance: DAPSONE
     Dosage: 50 MG, BID
     Route: 065
  11. DAPSONE [Concomitant]
     Active Substance: DAPSONE
     Dosage: 150 MG EVERY DAY
     Route: 065
  12. DAPSONE [Concomitant]
     Active Substance: DAPSONE
     Dosage: 200 MG EVERY DAY
     Route: 065

REACTIONS (3)
  - Cutaneous vasculitis [Unknown]
  - Condition aggravated [Unknown]
  - Drug ineffective [Unknown]
